FAERS Safety Report 8409233-0 (Version None)
Quarter: 2012Q2

REPORT INFORMATION
  Report Type: 
  Country: None (occurrence: None)
  Receive Date: 20120604
  Receipt Date: 20120529
  Transmission Date: 20120825
  Serious: Yes (Other)
  Sender: FDA-Public Use
  Company Number: US-AMGEN-USASP2012033732

PATIENT
  Age: 82 Year
  Sex: Male

DRUGS (6)
  1. LIPITOR [Concomitant]
     Dosage: UNK
  2. ASPIRIN [Concomitant]
     Dosage: UNK
  3. PREDNISONE [Concomitant]
     Dosage: UNK
  4. FISH OIL [Concomitant]
     Dosage: UNK
  5. PROCRIT [Suspect]
     Indication: RENAL FAILURE CHRONIC
     Dosage: 15000 IU, UNK
     Dates: start: 20080101
  6. FLOMAX [Concomitant]
     Dosage: UNK

REACTIONS (1)
  - WARM TYPE HAEMOLYTIC ANAEMIA [None]
